FAERS Safety Report 9260940 (Version 1)
Quarter: 2013Q1

REPORT INFORMATION
  Report Type: Spontaneous
  Country: US (occurrence: None)
  Receive Date: 20121212
  Receipt Date: 20121212
  Transmission Date: 20140127
  Serious: No
  Sender: FDA-Public Use
  Company Number: 1209USA002481

PATIENT
  Age: 22 Year
  Sex: Male

DRUGS (3)
  1. PEG-INTRON [Suspect]
     Indication: HEPATITIS C
     Dosage: REDIPEN
     Dates: start: 20120823
  2. VICTRELIS [Suspect]
     Indication: HEPATITIS C
     Dates: start: 20120920
  3. RIBAVIRIN [Suspect]
     Indication: HEPATITIS C
     Dates: start: 20120823

REACTIONS (3)
  - Body temperature increased [None]
  - Dysuria [None]
  - Abdominal pain [None]
